FAERS Safety Report 16188748 (Version 3)
Quarter: 2019Q3

REPORT INFORMATION
  Report Type: Report from Study
  Country: ZA (occurrence: ZA)
  Receive Date: 20190412
  Receipt Date: 20190710
  Transmission Date: 20191004
  Serious: Yes (Life-Threatening, Other)
  Sender: FDA-Public Use
  Company Number: ZA-SA-2019SA072706

PATIENT
  Age: 69 Year
  Sex: Female

DRUGS (7)
  1. AUSTELL AMLODIPINE [Concomitant]
     Dosage: 10 MG, AFTER BREAKFAST
     Dates: start: 19970109
  2. NO STUDY DRUG GIVEN [Suspect]
     Active Substance: INVESTIGATIONAL PRODUCT
     Dosage: UNK
  3. OPTISULIN (INSULIN GLARGINE) [Suspect]
     Active Substance: INSULIN GLARGINE
     Dosage: 18 U, HS, AT BEDTIME
     Dates: start: 20190109
  4. DIAMICRON [Concomitant]
     Active Substance: GLICLAZIDE
     Dosage: 90 MG, BEFORE BREAKFAST
     Dates: start: 19970109
  5. GLUCOPHAGE [Concomitant]
     Active Substance: METFORMIN HYDROCHLORIDE
     Dosage: 1000 MG, BID, AFTER SUPPER AND AFTER BREAKFAST
     Dates: start: 19970109
  6. ADCO-SIMVASTATIN [Concomitant]
     Active Substance: SIMVASTATIN
     Dosage: 10 MG, AFTER BREAKFAST
     Dates: start: 19970109
  7. LASIX [Concomitant]
     Active Substance: FUROSEMIDE
     Dosage: 40 MG, QD AFTER BREAKFAST
     Dates: start: 19970109

REACTIONS (8)
  - Cough [Not Recovered/Not Resolved]
  - Sneezing [Not Recovered/Not Resolved]
  - Glycosylated haemoglobin increased [Unknown]
  - Blood glucose increased [Not Recovered/Not Resolved]
  - Muscle spasms [Not Recovered/Not Resolved]
  - Cataract operation [Unknown]
  - Pain [Not Recovered/Not Resolved]
  - Influenza [Not Recovered/Not Resolved]

NARRATIVE: CASE EVENT DATE: 20190306
